FAERS Safety Report 7201282-3 (Version None)
Quarter: 2010Q4

REPORT INFORMATION
  Report Type: 
  Country: None (occurrence: None)
  Receive Date: 20101227
  Receipt Date: 20101227
  Transmission Date: 20110411
  Serious: Yes (Death)
  Sender: FDA-Public Use
  Company Number: None

PATIENT
  Age: 22 Year
  Sex: Male

DRUGS (1)
  1. AVASTIN [Suspect]

REACTIONS (6)
  - FISTULA DISCHARGE [None]
  - ILEAL PERFORATION [None]
  - LARGE INTESTINE PERFORATION [None]
  - POST PROCEDURAL FISTULA [None]
  - SEPSIS [None]
  - WOUND DEHISCENCE [None]
